FAERS Safety Report 8984708 (Version 3)
Quarter: 2013Q1

REPORT INFORMATION
  Report Type: Spontaneous
  Country: US (occurrence: None)
  Receive Date: 20121217
  Receipt Date: 20121220
  Transmission Date: 20140127
  Serious: Yes (Other)
  Sender: FDA-Public Use
  Company Number: 2012-004353

PATIENT
  Sex: Female

DRUGS (1)
  1. ATELVIA [Suspect]
     Indication: OSTEOPOROSIS
     Route: 048

REACTIONS (7)
  - Speech disorder [None]
  - Confusional state [None]
  - Oculogyric crisis [None]
  - CSF white blood cell count increased [None]
  - Encephalopathy [None]
  - Myalgia [None]
  - Vomiting [None]
